FAERS Safety Report 5009621-9 (Version None)
Quarter: 2006Q2

REPORT INFORMATION
  Report Type: 
  Country: None (occurrence: None)
  Receive Date: 20060524
  Receipt Date: 20060515
  Transmission Date: 20061013
  Serious: Yes (Hospitalization)
  Sender: FDA-Public Use
  Company Number: US-AMGEN-US179605

PATIENT
  Sex: Female

DRUGS (19)
  1. NEULASTA [Suspect]
     Indication: CHEMOTHERAPY
     Route: 065
     Dates: start: 20060404
  2. FENTANYL [Concomitant]
     Route: 062
  3. ZELNORM [Concomitant]
     Route: 048
  4. ATIVAN [Concomitant]
     Route: 065
  5. PROCRIT [Concomitant]
     Route: 065
  6. ESTRACE [Concomitant]
     Route: 065
  7. IMITREX [Concomitant]
     Route: 058
  8. MAXALT [Concomitant]
     Route: 065
  9. DILAUDID [Concomitant]
     Route: 065
  10. PHENERGAN HCL [Concomitant]
  11. REGLAN [Concomitant]
     Route: 065
  12. ASPIRIN [Concomitant]
     Route: 065
  13. CALCIUM CITRATE [Concomitant]
     Route: 065
  14. MAGNESIUM CITRATE [Concomitant]
     Route: 065
  15. VITAMIN D [Concomitant]
     Route: 065
  16. DULCOLAX [Concomitant]
     Route: 065
  17. MAGNESIUM ASPARTATE [Concomitant]
     Route: 065
  18. EPINEPHRINE [Concomitant]
     Route: 065
  19. MELPHALAN [Concomitant]

REACTIONS (5)
  - DIARRHOEA [None]
  - FEELING COLD [None]
  - HOT FLUSH [None]
  - MUSCLE SPASMS [None]
  - NAUSEA [None]
